FAERS Safety Report 26130528 (Version 1)
Quarter: 2025Q4

REPORT INFORMATION
  Report Type: Spontaneous
  Country: US (occurrence: None)
  Receive Date: 20251205
  Receipt Date: 20251205
  Transmission Date: 20260118
  Serious: No
  Sender: FDA-CTU
  Company Number: None

PATIENT
  Age: 85 Year
  Sex: Female

DRUGS (1)
  1. PIRFENIDONE [Suspect]
     Active Substance: PIRFENIDONE
     Indication: Interstitial lung disease
     Dosage: 267MG TID ORAL ?
     Route: 048
     Dates: start: 20251107

REACTIONS (2)
  - Confusional state [None]
  - Amnesia [None]

NARRATIVE: CASE EVENT DATE: 20251203
